FAERS Safety Report 20846664 (Version 2)
Quarter: 2022Q2

REPORT INFORMATION
  Report Type: Spontaneous
  Country: GB (occurrence: GB)
  Receive Date: 20220519
  Receipt Date: 20220523
  Transmission Date: 20220721
  Serious: Yes (Other)
  Sender: FDA-Public Use
  Company Number: None

PATIENT
  Age: 68 Year
  Sex: Female
  Weight: 60 kg

DRUGS (9)
  1. VENETOCLAX [Suspect]
     Active Substance: VENETOCLAX
     Indication: Product used for unknown indication
     Route: 048
  2. MODERNA COVID-19 VACCINE [Suspect]
     Active Substance: ELASOMERAN
     Indication: COVID-19 immunisation
     Dosage: DOSE 5
     Route: 030
     Dates: start: 20220511
  3. SARS-COV-2 [Suspect]
     Active Substance: SARS-COV-2
     Indication: COVID-19 immunisation
     Dosage: DOSE 2
     Route: 030
  4. SARS-COV-2 [Suspect]
     Active Substance: SARS-COV-2
     Dosage: DOSE 2
     Route: 030
     Dates: start: 20211023, end: 2021
  5. SARS-COV-2 [Suspect]
     Active Substance: SARS-COV-2
     Dosage: DOSE 3
     Route: 030
     Dates: start: 20210413
  6. SARS-COV-2 [Suspect]
     Active Substance: SARS-COV-2
     Dosage: DOSE 4
     Route: 030
     Dates: start: 20220128
  7. ATORVASTATIN [Concomitant]
     Active Substance: ATORVASTATIN
     Indication: Blood cholesterol
     Dates: start: 2018
  8. IBRUTINIB [Concomitant]
     Active Substance: IBRUTINIB
     Indication: Chronic lymphocytic leukaemia
     Route: 048
     Dates: start: 2018
  9. LANSOPRAZOLE [Concomitant]
     Active Substance: LANSOPRAZOLE
     Indication: Hiatus hernia
     Dates: start: 2018

REACTIONS (2)
  - Muscle fatigue [Not Recovered/Not Resolved]
  - Fatigue [Not Recovered/Not Resolved]

NARRATIVE: CASE EVENT DATE: 20220512
